FAERS Safety Report 6808418-4 (Version None)
Quarter: 2010Q2

REPORT INFORMATION
  Report Type: 
  Country: None (occurrence: None)
  Receive Date: 20100629
  Receipt Date: 20090708
  Transmission Date: 20101027
  Serious: No
  Sender: FDA-Public Use
  Company Number: US-PFIZER INC-2009209374

PATIENT
  Sex: Female
  Weight: 46.266 kg

DRUGS (5)
  1. ALPRAZOLAM [Suspect]
     Indication: PANIC ATTACK
     Dosage: 0.5 MG, 1X/DAY
     Dates: start: 20080301
  2. LIDOCAINE AND EPINEPHRINE [Suspect]
     Indication: TOOTH EXTRACTION
     Dates: start: 20080101, end: 20080101
  3. SUDAFED 12 HOUR [Suspect]
     Indication: NASOPHARYNGITIS
  4. CITRACAL [Suspect]
     Indication: OSTEOPENIA
     Dates: start: 20090505
  5. SYNTHROID [Concomitant]
     Indication: THYROID DISORDER
     Dosage: UNK

REACTIONS (7)
  - ABDOMINAL PAIN UPPER [None]
  - ANXIETY [None]
  - DRUG INEFFECTIVE [None]
  - INSOMNIA [None]
  - NASOPHARYNGITIS [None]
  - PANIC ATTACK [None]
  - TOOTH EXTRACTION [None]
